FAERS Safety Report 8531096-3 (Version None)
Quarter: 2012Q3

REPORT INFORMATION
  Report Type: 
  Country: None (occurrence: None)
  Receive Date: 20120723
  Receipt Date: 20120711
  Transmission Date: 20120928
  Serious: Yes (Disabling)
  Sender: FDA-Public Use
  Company Number: DE-CELGENEUS-062-21660-12071269

PATIENT
  Age: 46 Year
  Sex: Female
  Weight: 55 kg

DRUGS (12)
  1. AVASTIN [Suspect]
     Route: 065
     Dates: start: 20120425
  2. LEVOTHYROXINE SODIUM [Concomitant]
     Indication: HYPOTHYROIDISM
     Dosage: 100 UNKNOWN
     Route: 065
  3. AVASTIN [Suspect]
  4. AVASTIN [Suspect]
  5. ABRAXANE [Suspect]
  6. ENOXAPARIN SODIUM [Concomitant]
     Indication: THROMBOSIS
     Dosage: .8 UNKNOWN
     Route: 065
  7. BONDRINOL [Concomitant]
     Route: 065
     Dates: start: 20111001
  8. METOPROLOL TARTRATE [Concomitant]
     Indication: HYPERTENSION
     Dosage: 47.5 UNKNOWN
     Route: 065
  9. ABRAXANE [Suspect]
     Indication: BREAST CANCER
     Route: 065
     Dates: start: 20120531, end: 20120628
  10. DEXAMETHASONE [Concomitant]
     Dosage: 4 MILLIGRAM
     Route: 065
     Dates: start: 20110101
  11. ABRAXANE [Suspect]
  12. ABRAXANE [Suspect]

REACTIONS (2)
  - BLINDNESS UNILATERAL [None]
  - OPTIC ATROPHY [None]
